FAERS Safety Report 4720696-4 (Version None)
Quarter: 2005Q3

REPORT INFORMATION
  Report Type: 
  Country: None (occurrence: None)
  Receive Date: 20050719
  Receipt Date: 20050706
  Transmission Date: 20060218
  Serious: Yes (Hospitalization)
  Sender: FDA-Public Use
  Company Number: US-2005-004362

PATIENT
  Age: 47 Year
  Sex: Male
  Weight: 84.8 kg

DRUGS (18)
  1. BETASERON [Suspect]
     Indication: RELAPSING-REMITTING MULTIPLE SCLEROSIS
     Dosage: 8 MIU, EVERY 2D, SUBCUTANEOUS
     Route: 058
     Dates: start: 20010101
  2. AVANDAMET [Suspect]
     Indication: DIABETES MELLITUS NON-INSULIN-DEPENDENT
     Dosage: ORAL
     Route: 048
     Dates: end: 20050307
  3. CRESTOR               /NET/(ROSUVASTATIN CALCIUM) [Concomitant]
  4. ALLOPURINOL [Concomitant]
  5. HYDROCHLOROTHIAZIDE [Concomitant]
  6. TRILEPTAL [Concomitant]
  7. TRAMADOL [Concomitant]
  8. ASPIRIN [Concomitant]
  9. RISPERDAL [Concomitant]
  10. GABITRIL [Concomitant]
  11. ACCUPRIL [Concomitant]
  12. GEMFIBROZIL [Concomitant]
  13. AMITRIPTYLINE HCL [Concomitant]
  14. PRINIVIL [Concomitant]
  15. NEURONTIN [Concomitant]
  16. AVANDIA           (ROSIGITAZONE MALEATE) [Concomitant]
  17. GLUCOPHAGE [Concomitant]
  18. ZOCOR [Concomitant]

REACTIONS (9)
  - AGITATION [None]
  - CONDITION AGGRAVATED [None]
  - DIABETIC NEUROPATHY [None]
  - DRUG INTERACTION [None]
  - ENCEPHALOPATHY [None]
  - HYPOGLYCAEMIC ENCEPHALOPATHY [None]
  - HYPONATRAEMIA [None]
  - HYPOTENSION [None]
  - MULTIPLE SCLEROSIS [None]
